FAERS Safety Report 18142367 (Version 2)
Quarter: 2020Q4

REPORT INFORMATION
  Report Type: Spontaneous
  Country: US (occurrence: US)
  Receive Date: 20200812
  Receipt Date: 20201026
  Transmission Date: 20210113
  Serious: No
  Sender: FDA-Public Use
  Company Number: US-BAUSCH-BL-2020-022404

PATIENT
  Age: 69 Year
  Sex: Female

DRUGS (3)
  1. TRAMADOL. [Suspect]
     Active Substance: TRAMADOL
     Indication: PAIN
     Route: 065
  2. RELISTOR [Suspect]
     Active Substance: METHYLNALTREXONE BROMIDE
     Indication: CONSTIPATION
  3. RELISTOR [Suspect]
     Active Substance: METHYLNALTREXONE BROMIDE
     Indication: IRRITABLE BOWEL SYNDROME
     Route: 058
     Dates: start: 20200727, end: 20200803

REACTIONS (15)
  - Constipation [Unknown]
  - Headache [Unknown]
  - Diarrhoea [Unknown]
  - Drug ineffective [Unknown]
  - Asthenia [Unknown]
  - Gastrointestinal mucosal exfoliation [Unknown]
  - Nausea [Unknown]
  - Faeces hard [Unknown]
  - Mucous stools [Unknown]
  - Vomiting [Unknown]
  - Myalgia [Unknown]
  - Retching [Unknown]
  - Neck pain [Unknown]
  - Lethargy [Unknown]
  - Drug withdrawal syndrome [Unknown]

NARRATIVE: CASE EVENT DATE: 2020
